FAERS Safety Report 5088823-X (Version None)
Quarter: 2006Q3

REPORT INFORMATION
  Report Type: 
  Country: None (occurrence: None)
  Receive Date: 20060822
  Receipt Date: 20060815
  Transmission Date: 20061208
  Serious: Yes (Hospitalization)
  Sender: FDA-Public Use
  Company Number: FPI-06-037

PATIENT
  Sex: Female
  Weight: 74.8435 kg

DRUGS (2)
  1. BRAVELLE [Suspect]
     Indication: INFERTILITY
     Dosage: 78 IU DAILY
  2. MENOPUR [Suspect]
     Indication: INFERTILITY
     Dosage: 150 IU DAILY

REACTIONS (8)
  - ANXIETY [None]
  - ARRHYTHMIA [None]
  - BLOOD PRESSURE INCREASED [None]
  - DIZZINESS [None]
  - HEADACHE [None]
  - HEART RATE INCREASED [None]
  - MALAISE [None]
  - TREMOR [None]
